FAERS Safety Report 20029903 (Version 1)
Quarter: 2021Q4

REPORT INFORMATION
  Report Type: Report from Study
  Country: DE (occurrence: DE)
  Receive Date: 20211103
  Receipt Date: 20211103
  Transmission Date: 20220303
  Serious: Yes (Hospitalization)
  Sender: FDA-Public Use
  Company Number: DE-TAKEDA-2021TUS067725

PATIENT
  Sex: Female
  Weight: 77 kg

DRUGS (4)
  1. VEDOLIZUMAB [Suspect]
     Active Substance: VEDOLIZUMAB
     Indication: Product used for unknown indication
     Dosage: 108 MILLIGRAM, Q2WEEKS
     Route: 058
     Dates: start: 202108
  2. VITAMIN B12 [Concomitant]
     Active Substance: CYANOCOBALAMIN
     Indication: Anaemia vitamin B12 deficiency
     Dosage: 1000 MICROGRAM, Q3MONTHS
  3. CHOLECALCIFEROL [Concomitant]
     Active Substance: CHOLECALCIFEROL
     Indication: Vitamin D deficiency
     Dosage: 2000 INTERNATIONAL UNIT, 1/WEEK
  4. PANTOPRAZOLE [Concomitant]
     Active Substance: PANTOPRAZOLE
     Indication: Gastrooesophageal reflux disease
     Dosage: 40 MILLIGRAM

REACTIONS (1)
  - Pelvic pain [Recovered/Resolved]

NARRATIVE: CASE EVENT DATE: 20210815
